FAERS Safety Report 8839418 (Version 1)
Quarter: 2012Q4

REPORT INFORMATION
  Report Type: Spontaneous
  Country: US (occurrence: None)
  Receive Date: 20121012
  Receipt Date: 20121012
  Transmission Date: 20130627
  Serious: Yes (Hospitalization)
  Sender: FDA-Public Use
  Company Number: None

PATIENT
  Age: 30 Year
  Sex: Male
  Weight: 61 kg

DRUGS (2)
  1. CUBICIN [Suspect]
     Indication: SEPSIS
     Route: 042
     Dates: start: 20120817, end: 20120820
  2. CUBICIN [Suspect]
     Indication: DEVICE RELATED INFECTION
     Route: 042
     Dates: start: 20120817, end: 20120820

REACTIONS (8)
  - Dyspnoea [None]
  - Paraesthesia [None]
  - Rash [None]
  - Chest pain [None]
  - Paraesthesia [None]
  - Muscle tightness [None]
  - Dyspnoea [None]
  - Anxiety [None]
